FAERS Safety Report 9113632 (Version 2)
Quarter: 2021Q4

REPORT INFORMATION
  Report Type: Spontaneous
  Country: US (occurrence: US)
  Receive Date: 20130208
  Receipt Date: 20211201
  Transmission Date: 20220303
  Serious: Yes (Death, Other)
  Sender: FDA-Public Use
  Company Number: CHPA2013US002583

PATIENT
  Age: 23 Year
  Sex: Male
  Weight: 109 kg

DRUGS (1)
  1. DEXTROMETHORPHAN HYDROBROMIDE [Suspect]
     Active Substance: DEXTROMETHORPHAN HYDROBROMIDE
     Indication: Product used for unknown indication
     Dosage: UNK

REACTIONS (11)
  - Drug abuse [Fatal]
  - Toxicity to various agents [Fatal]
  - Confusional state [Fatal]
  - Abnormal behaviour [Fatal]
  - Aggression [Fatal]
  - Hyperhidrosis [Fatal]
  - Mental status changes [Fatal]
  - Pupils unequal [Fatal]
  - Tongue injury [Fatal]
  - Seizure [Fatal]
  - Cardiac arrest [Fatal]
